FAERS Safety Report 4694866-8 (Version None)
Quarter: 2005Q2

REPORT INFORMATION
  Report Type: 
  Country: None (occurrence: None)
  Receive Date: 20050617
  Receipt Date: 20050607
  Transmission Date: 20051028
  Serious: Yes (Hospitalization)
  Sender: FDA-Public Use
  Company Number: 2005-00407

PATIENT
  Age: 79 Year
  Sex: Male
  Weight: 96.1 kg

DRUGS (11)
  1. VELCADE [Suspect]
     Indication: MULTIPLE MYELOMA
     Dosage: 1.30 MG/M2, UNK, INTRAVENOUS
     Route: 042
     Dates: start: 20041213, end: 20050201
  2. VELCADE [Suspect]
  3. AMOXICILLIN [Concomitant]
  4. ATENOLOL [Concomitant]
  5. POTASSIUM (POTASSIUM) [Concomitant]
  6. GLIPIZIDE [Concomitant]
  7. SIMVASTATIN [Concomitant]
  8. ANTIEMETICS AND ANTINAUSEANTS [Concomitant]
  9. ACETYLSALICYLIC ACID SRT [Concomitant]
  10. MULTIVITAMINS (ERGOCALCIFEROL, ASCORBIC ACID, PANTHENOL, NICOTINAMIDE, [Concomitant]
  11. PAMIDRONATE DISODIUM [Concomitant]

REACTIONS (18)
  - AUTONOMIC NEUROPATHY [None]
  - BLOOD CREATININE INCREASED [None]
  - BLOOD CULTURE POSITIVE [None]
  - CONSTIPATION [None]
  - DECREASED ACTIVITY [None]
  - DECREASED APPETITE [None]
  - DIARRHOEA [None]
  - IMMUNODEFICIENCY [None]
  - INFLUENZA LIKE ILLNESS [None]
  - LABORATORY TEST INTERFERENCE [None]
  - MALAISE [None]
  - NAUSEA [None]
  - PANCYTOPENIA [None]
  - POST PROCEDURAL VOMITING [None]
  - PRODUCTIVE COUGH [None]
  - PYREXIA [None]
  - VOMITING [None]
  - WEIGHT DECREASED [None]
